FAERS Safety Report 19129473 (Version 4)
Quarter: 2021Q4

REPORT INFORMATION
  Report Type: Spontaneous
  Country: US (occurrence: US)
  Receive Date: 20210413
  Receipt Date: 20211105
  Transmission Date: 20220303
  Serious: No
  Sender: FDA-Public Use
  Company Number: US-PFIZER INC-2021357074

PATIENT
  Age: 68 Year
  Sex: Female

DRUGS (4)
  1. XELJANZ XR [Suspect]
     Active Substance: TOFACITINIB CITRATE
     Dosage: 11 MG
     Dates: start: 20210301
  2. XELJANZ XR [Suspect]
     Active Substance: TOFACITINIB CITRATE
     Dosage: 11 MG
     Dates: start: 202103
  3. XELJANZ XR [Suspect]
     Active Substance: TOFACITINIB CITRATE
     Dosage: 11 MG(TAKING THE MEDICATION ONCE A DAY FOR TWO DAYS THEN TAKES A DAY OFF)
     Dates: start: 202103
  4. XELJANZ XR [Suspect]
     Active Substance: TOFACITINIB CITRATE
     Dosage: 11 MG, CYCLIC (TWO DAYS ON ONE DAY OFF)
     Dates: start: 202103

REACTIONS (8)
  - Drug ineffective [Unknown]
  - Off label use [Unknown]
  - Tooth infection [Not Recovered/Not Resolved]
  - Infection [Not Recovered/Not Resolved]
  - Abdominal pain upper [Not Recovered/Not Resolved]
  - Abdominal discomfort [Not Recovered/Not Resolved]
  - Urinary tract infection [Unknown]
  - Bone pain [Unknown]

NARRATIVE: CASE EVENT DATE: 20210330
